FAERS Safety Report 10144649 (Version 1)
Quarter: 2014Q2

REPORT INFORMATION
  Report Type: Spontaneous
  Country: US (occurrence: US)
  Receive Date: 20140430
  Receipt Date: 20140430
  Transmission Date: 20141212
  Serious: No
  Sender: FDA-Public Use
  Company Number: US-SANOFI-AVENTIS-2013SA079764

PATIENT
  Sex: Female

DRUGS (1)
  1. LOVENOX [Suspect]
     Indication: DEEP VEIN THROMBOSIS
     Route: 065

REACTIONS (3)
  - Abdominal discomfort [Unknown]
  - Injection site pain [Unknown]
  - Exposure during pregnancy [Unknown]
